FAERS Safety Report 9425813 (Version 1)
Quarter: 2013Q3

REPORT INFORMATION
  Report Type: Report from Study
  Country: JP (occurrence: JP)
  Receive Date: 20130729
  Receipt Date: 20130729
  Transmission Date: 20140515
  Serious: Yes (Hospitalization, Other)
  Sender: FDA-Public Use
  Company Number: JP-GILEAD-2013-0080163

PATIENT
  Age: 59 Year
  Sex: Male

DRUGS (7)
  1. EMTRICITABINE/TENOFOVIR DISOPROXIL FUMARATE [Suspect]
     Indication: HIV INFECTION
     Dosage: 1 DF, QD
     Route: 048
     Dates: start: 20120810
  2. NORVIR [Suspect]
     Indication: HIV INFECTION
     Dosage: 100 MG, UNK
     Route: 048
     Dates: start: 20120810
  3. PREZISTANAIVE [Suspect]
     Indication: HIV INFECTION
     Dosage: 800 MG, UNK
     Route: 048
     Dates: start: 20120810
  4. CELSENTRI [Suspect]
     Indication: HIV INFECTION
     Dosage: 300 MG, UNK
     Route: 048
     Dates: start: 20120810
  5. ZITHROMAC [Concomitant]
     Indication: OPPORTUNISTIC INFECTION PROPHYLAXIS
     Dosage: 1200 MG, Q1WK
     Route: 048
     Dates: start: 20120710
  6. BENAMBAX [Concomitant]
     Indication: ANTIFUNGAL PROPHYLAXIS
     Dosage: 220 MG, Q1MONTH
     Route: 041
     Dates: start: 20120710
  7. VALIXA [Concomitant]
     Indication: CYTOMEGALOVIRUS INFECTION
     Dosage: 2 DF, QD
     Route: 048
     Dates: start: 20120803

REACTIONS (1)
  - Cerebral haemorrhage [Not Recovered/Not Resolved]
